FAERS Safety Report 8120807-7 (Version None)
Quarter: 2012Q1

REPORT INFORMATION
  Report Type: 
  Country: None (occurrence: None)
  Receive Date: 20120207
  Receipt Date: 20120130
  Transmission Date: 20120608
  Serious: Yes (Other)
  Sender: FDA-Public Use
  Company Number: US-BAYER-2011-066777

PATIENT
  Sex: Female

DRUGS (4)
  1. MIRENA [Suspect]
     Indication: CONTRACEPTION
     Dosage: 20 ?G, CONT
     Route: 015
  2. MIRENA [Suspect]
     Dosage: 20 ?G, CONT
     Route: 015
     Dates: start: 20110629, end: 20120119
  3. MIRENA [Suspect]
     Dosage: 20 ?G/D, CONT
     Route: 015
     Dates: start: 20120101
  4. MIRENA [Suspect]
     Dosage: 20 ?G, CONT
     Route: 015

REACTIONS (12)
  - PELVIC PAIN [None]
  - MOOD SWINGS [None]
  - STRESS [None]
  - HEADACHE [None]
  - SEXUALLY TRANSMITTED DISEASE [None]
  - BACK PAIN [None]
  - MEDICAL DEVICE COMPLICATION [None]
  - OVARIAN CYST [None]
  - ABDOMINAL PAIN [None]
  - MENORRHAGIA [None]
  - DEVICE DEPLOYMENT ISSUE [None]
  - VAGINAL HAEMORRHAGE [None]
